FAERS Safety Report 7670111-6 (Version None)
Quarter: 2011Q3

REPORT INFORMATION
  Report Type: 
  Country: None (occurrence: None)
  Receive Date: 20110808
  Receipt Date: 20110726
  Transmission Date: 20111222
  Serious: Yes (Other)
  Sender: FDA-Public Use
  Company Number: US-CELGENEUS-163-21880-11041158

PATIENT
  Sex: Male

DRUGS (2)
  1. REVLIMID [Suspect]
     Indication: MULTIPLE MYELOMA
     Dosage: 25 MILLIGRAM
     Route: 048
     Dates: start: 20100301
  2. REVLIMID [Suspect]
     Route: 048
     Dates: start: 20110201

REACTIONS (6)
  - OEDEMA PERIPHERAL [None]
  - CHOLELITHIASIS [None]
  - BACK PAIN [None]
  - DYSPNOEA [None]
  - PRURITUS [None]
  - THROMBOSIS [None]
